FAERS Safety Report 6448781-X (Version None)
Quarter: 2009Q4

REPORT INFORMATION
  Report Type: 
  Country: None (occurrence: None)
  Receive Date: 20091120
  Receipt Date: 20091109
  Transmission Date: 20100525
  Serious: Yes (Hospitalization, Other)
  Sender: FDA-Public Use
  Company Number: PHHY2009DE43618

PATIENT
  Sex: Female
  Weight: 79 kg

DRUGS (5)
  1. ACLASTA [Suspect]
     Indication: OSTEOPOROSIS
     Dosage: 5 MG/ YEAR
     Dates: start: 20090923, end: 20090901
  2. LEVETIRACETAM [Concomitant]
     Indication: EPILEPSY
     Dosage: 4.5 MG/ DAY
     Route: 048
     Dates: start: 20090919
  3. DULOXETINE HYDROCHLORIDE [Concomitant]
     Indication: DEPRESSION
     Dosage: 60 MG/ DAY
     Route: 048
     Dates: start: 20090924
  4. HYDROCORTISONE [Concomitant]
     Indication: HYPOPITUITARISM
     Dosage: 30 MG/ DAY
     Route: 048
     Dates: start: 20090122
  5. LEVOTHYROXINE SODIUM [Concomitant]
     Indication: HYPOPITUITARISM
     Dosage: 50 UG/ DAY
     Route: 048
     Dates: start: 20090101

REACTIONS (5)
  - ACUTE PHASE REACTION [None]
  - HYPOTENSION [None]
  - PYREXIA [None]
  - SOMNOLENCE [None]
  - URINARY TRACT INFECTION [None]
